FAERS Safety Report 10223753 (Version 1)
Quarter: 2014Q2

REPORT INFORMATION
  Report Type: Report from Study
  Country: BR (occurrence: BR)
  Receive Date: 20140609
  Receipt Date: 20140609
  Transmission Date: 20141212
  Serious: Yes (Death, Hospitalization, Other)
  Sender: FDA-Public Use
  Company Number: BR-US-EMD SERONO, INC.-7297006

PATIENT
  Age: 40 Year
  Sex: Male

DRUGS (1)
  1. REBIF [Suspect]
     Indication: MULTIPLE SCLEROSIS
     Dates: start: 20060101, end: 20140523

REACTIONS (5)
  - Pneumonia [Fatal]
  - Vomiting [Unknown]
  - Cerebrovascular accident [Unknown]
  - Pyrexia [Unknown]
  - Headache [Unknown]
